FAERS Safety Report 16299090 (Version 2)
Quarter: 2019Q2

REPORT INFORMATION
  Report Type: Spontaneous
  Country: US (occurrence: US)
  Receive Date: 20190510
  Receipt Date: 20190522
  Transmission Date: 20190711
  Serious: Yes (Other)
  Sender: FDA-Public Use
  Company Number: US-VERTEX PHARMACEUTICALS-2019-004056

PATIENT
  Age: 14 Year
  Sex: Male

DRUGS (3)
  1. PULMOZYME [Concomitant]
     Active Substance: DORNASE ALFA
  2. ORKAMBI [Suspect]
     Active Substance: IVACAFTOR\LUMACAFTOR
     Indication: CYSTIC FIBROSIS
     Dosage: 400/250 MG, BID
     Route: 048
     Dates: start: 20170824
  3. TOBI [Concomitant]
     Active Substance: TOBRAMYCIN

REACTIONS (3)
  - Spinal cord injury [Unknown]
  - Sports injury [Unknown]
  - Testicular swelling [Unknown]

NARRATIVE: CASE EVENT DATE: 201904
